FAERS Safety Report 7224947-6 (Version None)
Quarter: 2011Q1

REPORT INFORMATION
  Report Type: 
  Country: None (occurrence: None)
  Receive Date: 20110113
  Receipt Date: 20101206
  Transmission Date: 20110831
  Serious: Yes (Death)
  Sender: FDA-Public Use
  Company Number: JP-B.I. PHARMACEUTICALS,INC./RIDGEFIELD-2010-BP-12472NB

PATIENT
  Sex: Female

DRUGS (4)
  1. PERMAX [Suspect]
     Dosage: 750 MCG
     Route: 048
     Dates: start: 20091125
  2. BI-SIFROL TABLETS [Suspect]
     Indication: PARKINSON'S DISEASE
     Dosage: 4 MG
     Route: 048
     Dates: end: 20091124
  3. COMTAN [Suspect]
     Dosage: 300 MG
  4. MADOPAR [Suspect]
     Dosage: 300 MG

REACTIONS (1)
  - ROAD TRAFFIC ACCIDENT [None]
